FAERS Safety Report 11871088 (Version 1)
Quarter: 2015Q4

REPORT INFORMATION
  Report Type: Spontaneous
  Country: US (occurrence: None)
  Receive Date: 20151224
  Receipt Date: 20151224
  Transmission Date: 20160305
  Serious: Yes (Hospitalization)
  Sender: FDA-Public Use
  Company Number: None

PATIENT
  Age: 66 Year
  Sex: Female

DRUGS (8)
  1. METROPOLOL [Concomitant]
     Active Substance: METOPROLOL
  2. DIAZEPAM. [Suspect]
     Active Substance: DIAZEPAM
     Indication: ANXIETY
     Route: 048
     Dates: start: 20150726, end: 20150726
  3. AMLODIPINE [Concomitant]
     Active Substance: AMLODIPINE BESYLATE
  4. DOXEPIN [Concomitant]
     Active Substance: DOXEPIN
  5. LAMOTRIGINE. [Concomitant]
     Active Substance: LAMOTRIGINE
  6. LOVASTATIN. [Concomitant]
     Active Substance: LOVASTATIN
  7. VENLAFAXINE [Concomitant]
     Active Substance: VENLAFAXINE HYDROCHLORIDE
  8. CLONAZEPAM. [Suspect]
     Active Substance: CLONAZEPAM
     Route: 048

REACTIONS (8)
  - Depressed level of consciousness [None]
  - Oxygen saturation decreased [None]
  - Respiratory depression [None]
  - Respiratory rate decreased [None]
  - Pupillary reflex impaired [None]
  - Mental status changes [None]
  - Dysarthria [None]
  - Lethargy [None]

NARRATIVE: CASE EVENT DATE: 20150726
